FAERS Safety Report 20627821 (Version 2)
Quarter: 2022Q4

REPORT INFORMATION
  Report Type: Spontaneous
  Country: US (occurrence: US)
  Receive Date: 20220323
  Receipt Date: 20221123
  Transmission Date: 20230112
  Serious: No
  Sender: FDA-Public Use
  Company Number: US-LUPIN PHARMACEUTICALS INC.-2022-04145

PATIENT
  Sex: Female

DRUGS (1)
  1. LAPATINIB [Suspect]
     Active Substance: LAPATINIB
     Indication: Product used for unknown indication
     Dosage: UNK
     Route: 065

REACTIONS (3)
  - Product use complaint [Unknown]
  - Product size issue [Unknown]
  - No adverse event [Unknown]
